FAERS Safety Report 4414978-3 (Version None)
Quarter: 2004Q3

REPORT INFORMATION
  Report Type: 
  Country: None (occurrence: None)
  Receive Date: 20040803
  Receipt Date: 20040803
  Transmission Date: 20050211
  Serious: Yes (Hospitalization, Disabling)
  Sender: FDA-Public Use
  Company Number: None

PATIENT
  Age: 42 Year
  Sex: Male
  Weight: 102.0593 kg

DRUGS (1)
  1. OXYCONTIN [Suspect]
     Indication: BACK PAIN
     Dosage: 20MG.  TWICE PER  ORAL
     Route: 048
     Dates: start: 20020210, end: 20040802

REACTIONS (10)
  - BLOOD TESTOSTERONE DECREASED [None]
  - CONSTIPATION [None]
  - DEPRESSION [None]
  - DYSURIA [None]
  - ERECTILE DYSFUNCTION [None]
  - IMPAIRED WORK ABILITY [None]
  - MIDDLE INSOMNIA [None]
  - PARAESTHESIA [None]
  - POLLAKIURIA [None]
  - POST PROCEDURAL COMPLICATION [None]
